FAERS Safety Report 18423658 (Version 2)
Quarter: 2020Q4

REPORT INFORMATION
  Report Type: Spontaneous
  Country: IR (occurrence: IR)
  Receive Date: 20201024
  Receipt Date: 20201110
  Transmission Date: 20210114
  Serious: Yes (Other)
  Sender: FDA-Public Use
  Company Number: IR-ACCORD-206172

PATIENT
  Age: 3 Year
  Sex: Male

DRUGS (4)
  1. TRIHEXYPHENIDYL [Concomitant]
     Active Substance: TRIHEXYPHENIDYL
     Indication: DOPAMINE DYSREGULATION SYNDROME
  2. CARBIDOPA/LEVODOPA [Suspect]
     Active Substance: CARBIDOPA\LEVODOPA
     Indication: DOPAMINE DYSREGULATION SYNDROME
     Dosage: STRENGTH:?25 MG / 100 MG
     Route: 048
  3. BACLOFEN. [Concomitant]
     Active Substance: BACLOFEN
     Indication: DOPAMINE DYSREGULATION SYNDROME
  4. CLONAZEPAM. [Concomitant]
     Active Substance: CLONAZEPAM
     Indication: DOPAMINE DYSREGULATION SYNDROME

REACTIONS (2)
  - Dopamine dysregulation syndrome [Recovering/Resolving]
  - Condition aggravated [Recovering/Resolving]
